FAERS Safety Report 5007416-3 (Version None)
Quarter: 2006Q2

REPORT INFORMATION
  Report Type: 
  Country: None (occurrence: None)
  Receive Date: 20060517
  Receipt Date: 20060505
  Transmission Date: 20061013
  Serious: Yes (Death, Hospitalization, Other)
  Sender: FDA-Public Use
  Company Number: 2006-DE-02282GD

PATIENT
  Age: 57 Year
  Sex: Male

DRUGS (4)
  1. PREDNISONE TAB [Suspect]
     Indication: HIGH GRADE B-CELL LYMPHOMA BURKITT-LIKE LYMPHOMA
  2. CYCLOPHOSPHAMIDE [Suspect]
     Indication: HIGH GRADE B-CELL LYMPHOMA BURKITT-LIKE LYMPHOMA
  3. MITOXANTRONE [Suspect]
     Indication: HIGH GRADE B-CELL LYMPHOMA BURKITT-LIKE LYMPHOMA
  4. VINCRISTINE [Suspect]
     Indication: HIGH GRADE B-CELL LYMPHOMA BURKITT-LIKE LYMPHOMA

REACTIONS (10)
  - ARTHRALGIA [None]
  - CUSHINGOID [None]
  - GENERAL PHYSICAL HEALTH DETERIORATION [None]
  - HAEMOGLOBIN DECREASED [None]
  - LOSS OF CONSCIOUSNESS [None]
  - PLATELET COUNT DECREASED [None]
  - PNEUMONIA [None]
  - THERAPY NON-RESPONDER [None]
  - UNRESPONSIVE TO PAIN STIMULI [None]
  - WEST NILE VIRAL INFECTION [None]
